FAERS Safety Report 20568018 (Version 4)
Quarter: 2022Q2

REPORT INFORMATION
  Report Type: Report from Study
  Country: BR (occurrence: BR)
  Receive Date: 20220308
  Receipt Date: 20220615
  Transmission Date: 20220721
  Serious: Yes (Death, Hospitalization, Other)
  Sender: FDA-Public Use
  Company Number: BR-NOVARTISPH-NVSC2022BR054086

PATIENT
  Age: 62 Year
  Sex: Male

DRUGS (4)
  1. TAFINLAR [Suspect]
     Active Substance: DABRAFENIB MESYLATE
     Indication: Malignant melanoma
     Dosage: UNK
     Route: 065
  2. TAFINLAR [Suspect]
     Active Substance: DABRAFENIB MESYLATE
     Dosage: UNK (STARTED ON 11 FEB THIS YEAR)
     Route: 065
  3. MEKINIST [Suspect]
     Active Substance: TRAMETINIB DIMETHYL SULFOXIDE
     Indication: Malignant melanoma
     Dosage: UNK
     Route: 065
  4. MEKINIST [Suspect]
     Active Substance: TRAMETINIB DIMETHYL SULFOXIDE
     Dosage: UNK (STARTED ON 11 FEB THIS YEAR)
     Route: 065

REACTIONS (12)
  - Death [Fatal]
  - Bacterial infection [Recovered/Resolved]
  - Post procedural haemorrhage [Not Recovered/Not Resolved]
  - Aphthous ulcer [Unknown]
  - Decreased appetite [Unknown]
  - Diarrhoea [Unknown]
  - Nausea [Unknown]
  - Memory impairment [Unknown]
  - Product dose omission issue [Unknown]
  - Insomnia [Unknown]
  - Gastrointestinal infection [Unknown]
  - Pyrexia [Unknown]
